FAERS Safety Report 22000552 (Version 1)
Quarter: 2023Q1

REPORT INFORMATION
  Report Type: Spontaneous
  Country: US (occurrence: None)
  Receive Date: 20230215
  Receipt Date: 20230215
  Transmission Date: 20230418
  Serious: Yes (Other)
  Sender: FDA-Public Use
  Company Number: None

PATIENT
  Age: 84 Year
  Sex: Male
  Weight: 85.5 kg

DRUGS (1)
  1. REPATHA [Suspect]
     Active Substance: EVOLOCUMAB
     Indication: Blood cholesterol increased
     Dosage: OTHER FREQUENCY : 1 ML EVERY 2 WEEKS;?
     Route: 030
     Dates: start: 20230207, end: 20230215

REACTIONS (3)
  - Back pain [None]
  - Pain [None]
  - Moaning [None]

NARRATIVE: CASE EVENT DATE: 20230215
